FAERS Safety Report 6578951-1 (Version None)
Quarter: 2010Q1

REPORT INFORMATION
  Report Type: 
  Country: None (occurrence: None)
  Receive Date: 20100212
  Receipt Date: 20100203
  Transmission Date: 20100710
  Serious: Yes (Other)
  Sender: FDA-Public Use
  Company Number: US-BAYER-201013232NA

PATIENT
  Age: 29 Year
  Sex: Female

DRUGS (1)
  1. MIRENA [Suspect]
     Indication: PREGNANCY
     Dosage: FREQUENCY: CONTINUOUS
     Route: 015
     Dates: start: 20091202

REACTIONS (2)
  - ABDOMINAL PAIN [None]
  - DEVICE DISLOCATION [None]
